FAERS Safety Report 20783171 (Version 5)
Quarter: 2023Q1

REPORT INFORMATION
  Report Type: Report from Study
  Country: US (occurrence: US)
  Receive Date: 20220504
  Receipt Date: 20230110
  Transmission Date: 20230418
  Serious: No
  Sender: FDA-Public Use
  Company Number: US-NOVARTISTESTPH-NVSC2022US102344

PATIENT
  Sex: Female

DRUGS (2)
  1. XIIDRA [Suspect]
     Active Substance: LIFITEGRAST
     Indication: Product used for unknown indication
     Dosage: 3 DRP, Q12H (IN EACH EYE)
     Route: 065
  2. XIIDRA [Suspect]
     Active Substance: LIFITEGRAST
     Dosage: 5 ML, BID
     Route: 047

REACTIONS (4)
  - Condition aggravated [Unknown]
  - Vision blurred [Unknown]
  - Extra dose administered [Unknown]
  - Off label use [Unknown]
